FAERS Safety Report 10213734 (Version 1)
Quarter: 2014Q2

REPORT INFORMATION
  Report Type: Spontaneous
  Country: GB (occurrence: None)
  Receive Date: 20140530
  Receipt Date: 20140530
  Transmission Date: 20141212
  Serious: Yes (Other)
  Sender: FDA-Public Use
  Company Number: FK201402026

PATIENT
  Age: 48 Year
  Sex: Male

DRUGS (7)
  1. VINBLASTINE SULFATE [Suspect]
     Indication: HODGKIN^S DISEASE
  2. TENOFOVIR [Suspect]
     Indication: HIV INFECTION
  3. EMTRICITABINE [Suspect]
     Indication: HIV INFECTION
  4. NEVIRAPINE [Suspect]
     Indication: HIV INFECTION
  5. DOXORUBICIN (DOXORUBICIN) [Concomitant]
  6. BLEOMYCIN (BLEOMYCIN) [Concomitant]
  7. DACARBAZINE (DACARBAZINE) [Concomitant]

REACTIONS (5)
  - Autonomic neuropathy [None]
  - Vocal cord paralysis [None]
  - Dysphonia [None]
  - Vocal cord paralysis [None]
  - Neurotoxicity [None]
